FAERS Safety Report 22601429 (Version 1)
Quarter: 2023Q2

REPORT INFORMATION
  Report Type: Spontaneous
  Country: US (occurrence: US)
  Receive Date: 20230614
  Receipt Date: 20230614
  Transmission Date: 20230722
  Serious: No
  Sender: FDA-Public Use
  Company Number: US-RIGEL Pharmaceuticals, INC-2023FOS000368

PATIENT
  Sex: Female

DRUGS (2)
  1. TAVALISSE [Suspect]
     Active Substance: FOSTAMATINIB
     Indication: Iron deficiency anaemia
     Dosage: 100 MG, BID
     Route: 048
     Dates: start: 2023, end: 2023
  2. TAVALISSE [Suspect]
     Active Substance: FOSTAMATINIB
     Dosage: 100 MG, BID
     Route: 048
     Dates: start: 2023

REACTIONS (11)
  - Constipation [Unknown]
  - Platelet count [Unknown]
  - Increased appetite [Unknown]
  - Blood glucose abnormal [Unknown]
  - Weight increased [Unknown]
  - Irritability [Unknown]
  - Back pain [Unknown]
  - Sciatic nerve injury [Unknown]
  - Off label use [Unknown]
  - Abdominal pain [Unknown]
  - Fatigue [Unknown]

NARRATIVE: CASE EVENT DATE: 20230101
